FAERS Safety Report 18948349 (Version 1)
Quarter: 2021Q1

REPORT INFORMATION
  Report Type: Spontaneous
  Country: US (occurrence: US)
  Receive Date: 20210226
  Receipt Date: 20210226
  Transmission Date: 20210420
  Serious: No
  Sender: FDA-Public Use
  Company Number: US-ROCHE-2570444

PATIENT
  Age: 51 Year
  Sex: Male

DRUGS (2)
  1. ALBUTEROL. [Concomitant]
     Active Substance: ALBUTEROL
  2. XOLAIR [Suspect]
     Active Substance: OMALIZUMAB
     Indication: PRODUCT USED FOR UNKNOWN INDICATION
     Dosage: 1 INJECTION EVERY 28 DAYS ;ONGOING: NO
     Route: 058
     Dates: start: 20200205, end: 20200205

REACTIONS (9)
  - Feeling abnormal [Unknown]
  - Malaise [Unknown]
  - Diarrhoea [Unknown]
  - Nausea [Unknown]
  - Cough [Unknown]
  - Chills [Unknown]
  - Decreased appetite [Unknown]
  - Temperature intolerance [Unknown]
  - Abdominal pain [Unknown]

NARRATIVE: CASE EVENT DATE: 20200214
